FAERS Safety Report 25037438 (Version 1)
Quarter: 2025Q1

REPORT INFORMATION
  Report Type: Report from Study
  Country: US (occurrence: US)
  Receive Date: 20250304
  Receipt Date: 20250304
  Transmission Date: 20250409
  Serious: Yes (Hospitalization, Other)
  Sender: MYLAN
  Company Number: US-MYLANLABS-2025M1017289

PATIENT
  Age: 69 Year
  Sex: Male

DRUGS (60)
  1. CELEBREX [Suspect]
     Active Substance: CELECOXIB
     Indication: Product used for unknown indication
  2. CELEBREX [Suspect]
     Active Substance: CELECOXIB
     Route: 065
  3. CELEBREX [Suspect]
     Active Substance: CELECOXIB
     Route: 065
  4. CELEBREX [Suspect]
     Active Substance: CELECOXIB
  5. DUPIXENT [Suspect]
     Active Substance: DUPILUMAB
     Indication: Asthma
     Dosage: 300 MILLIGRAM, BIMONTHLY (ONCE EVERY OTHER WEEK)
  6. DUPIXENT [Suspect]
     Active Substance: DUPILUMAB
     Dosage: 300 MILLIGRAM, BIMONTHLY (ONCE EVERY OTHER WEEK)
     Route: 058
  7. DUPIXENT [Suspect]
     Active Substance: DUPILUMAB
     Dosage: 300 MILLIGRAM, BIMONTHLY (ONCE EVERY OTHER WEEK)
     Route: 058
  8. DUPIXENT [Suspect]
     Active Substance: DUPILUMAB
     Dosage: 300 MILLIGRAM, BIMONTHLY (ONCE EVERY OTHER WEEK)
  9. IRBESARTAN [Concomitant]
     Active Substance: IRBESARTAN
  10. IRBESARTAN [Concomitant]
     Active Substance: IRBESARTAN
     Route: 065
  11. IRBESARTAN [Concomitant]
     Active Substance: IRBESARTAN
     Route: 065
  12. IRBESARTAN [Concomitant]
     Active Substance: IRBESARTAN
  13. VITAMIN D3 [Concomitant]
     Active Substance: CHOLECALCIFEROL
  14. VITAMIN D3 [Concomitant]
     Active Substance: CHOLECALCIFEROL
     Route: 065
  15. VITAMIN D3 [Concomitant]
     Active Substance: CHOLECALCIFEROL
     Route: 065
  16. VITAMIN D3 [Concomitant]
     Active Substance: CHOLECALCIFEROL
  17. OMEPRAZOLE [Concomitant]
     Active Substance: OMEPRAZOLE
  18. OMEPRAZOLE [Concomitant]
     Active Substance: OMEPRAZOLE
     Route: 065
  19. OMEPRAZOLE [Concomitant]
     Active Substance: OMEPRAZOLE
     Route: 065
  20. OMEPRAZOLE [Concomitant]
     Active Substance: OMEPRAZOLE
  21. ATORVASTATIN [Concomitant]
     Active Substance: ATORVASTATIN
  22. ATORVASTATIN [Concomitant]
     Active Substance: ATORVASTATIN
     Route: 065
  23. ATORVASTATIN [Concomitant]
     Active Substance: ATORVASTATIN
     Route: 065
  24. ATORVASTATIN [Concomitant]
     Active Substance: ATORVASTATIN
  25. FERROUS FUMARATE [Concomitant]
     Active Substance: FERROUS FUMARATE
  26. FERROUS FUMARATE [Concomitant]
     Active Substance: FERROUS FUMARATE
     Route: 065
  27. FERROUS FUMARATE [Concomitant]
     Active Substance: FERROUS FUMARATE
     Route: 065
  28. FERROUS FUMARATE [Concomitant]
     Active Substance: FERROUS FUMARATE
  29. CETIRIZINE [Concomitant]
     Active Substance: CETIRIZINE HYDROCHLORIDE
  30. CETIRIZINE [Concomitant]
     Active Substance: CETIRIZINE HYDROCHLORIDE
     Route: 065
  31. CETIRIZINE [Concomitant]
     Active Substance: CETIRIZINE HYDROCHLORIDE
     Route: 065
  32. CETIRIZINE [Concomitant]
     Active Substance: CETIRIZINE HYDROCHLORIDE
  33. CALCIUM [Concomitant]
     Active Substance: CALCIUM
  34. CALCIUM [Concomitant]
     Active Substance: CALCIUM
     Route: 065
  35. CALCIUM [Concomitant]
     Active Substance: CALCIUM
     Route: 065
  36. CALCIUM [Concomitant]
     Active Substance: CALCIUM
  37. METOPROLOL SUCCINATE [Concomitant]
     Active Substance: METOPROLOL SUCCINATE
  38. METOPROLOL SUCCINATE [Concomitant]
     Active Substance: METOPROLOL SUCCINATE
     Route: 065
  39. METOPROLOL SUCCINATE [Concomitant]
     Active Substance: METOPROLOL SUCCINATE
     Route: 065
  40. METOPROLOL SUCCINATE [Concomitant]
     Active Substance: METOPROLOL SUCCINATE
  41. AMLODIPINE [Concomitant]
     Active Substance: AMLODIPINE BESYLATE
  42. AMLODIPINE [Concomitant]
     Active Substance: AMLODIPINE BESYLATE
     Route: 065
  43. AMLODIPINE [Concomitant]
     Active Substance: AMLODIPINE BESYLATE
     Route: 065
  44. AMLODIPINE [Concomitant]
     Active Substance: AMLODIPINE BESYLATE
  45. ALBUTEROL [Concomitant]
     Active Substance: ALBUTEROL
  46. ALBUTEROL [Concomitant]
     Active Substance: ALBUTEROL
     Route: 065
  47. ALBUTEROL [Concomitant]
     Active Substance: ALBUTEROL
     Route: 065
  48. ALBUTEROL [Concomitant]
     Active Substance: ALBUTEROL
  49. LASIX [Concomitant]
     Active Substance: FUROSEMIDE
  50. LASIX [Concomitant]
     Active Substance: FUROSEMIDE
     Route: 065
  51. LASIX [Concomitant]
     Active Substance: FUROSEMIDE
     Route: 065
  52. LASIX [Concomitant]
     Active Substance: FUROSEMIDE
  53. ASPIRIN [Concomitant]
     Active Substance: ASPIRIN
  54. ASPIRIN [Concomitant]
     Active Substance: ASPIRIN
     Route: 065
  55. ASPIRIN [Concomitant]
     Active Substance: ASPIRIN
     Route: 065
  56. ASPIRIN [Concomitant]
     Active Substance: ASPIRIN
  57. SINGULAIR [Concomitant]
     Active Substance: MONTELUKAST SODIUM
  58. SINGULAIR [Concomitant]
     Active Substance: MONTELUKAST SODIUM
     Route: 065
  59. SINGULAIR [Concomitant]
     Active Substance: MONTELUKAST SODIUM
     Route: 065
  60. SINGULAIR [Concomitant]
     Active Substance: MONTELUKAST SODIUM

REACTIONS (2)
  - Cardiac operation [Unknown]
  - Rash [Unknown]

NARRATIVE: CASE EVENT DATE: 20240508
